FAERS Safety Report 26121387 (Version 1)
Quarter: 2025Q4

REPORT INFORMATION
  Report Type: Spontaneous
  Country: US (occurrence: None)
  Receive Date: 20251203
  Receipt Date: 20251203
  Transmission Date: 20260118
  Serious: Yes (Hospitalization)
  Sender: FDA-CTU
  Company Number: None

PATIENT
  Age: 76 Year
  Sex: Female
  Weight: 76.05 kg

DRUGS (1)
  1. KISUNLA [Suspect]
     Active Substance: DONANEMAB-AZBT
     Indication: Dementia Alzheimer^s type
     Dosage: OTHER FREQUENCY : MONTHLY;?
     Route: 042
     Dates: start: 20251126, end: 20251126

REACTIONS (13)
  - Dizziness [None]
  - Dizziness [None]
  - Feeling hot [None]
  - Infusion related reaction [None]
  - Nausea [None]
  - Vomiting [None]
  - Cold sweat [None]
  - Dyspnoea [None]
  - Chest pain [None]
  - Wheezing [None]
  - Feeling abnormal [None]
  - Hernia repair [None]
  - Amyloid related imaging abnormalities [None]

NARRATIVE: CASE EVENT DATE: 20251126
